FAERS Safety Report 15373748 (Version 5)
Quarter: 2020Q2

REPORT INFORMATION
  Report Type: Spontaneous
  Country: US (occurrence: US)
  Receive Date: 20180912
  Receipt Date: 20200402
  Transmission Date: 20200713
  Serious: Yes (Other)
  Sender: FDA-Public Use
  Company Number: US-PFIZER INC-2018363897

PATIENT
  Age: 44 Year
  Sex: Female
  Weight: 113.4 kg

DRUGS (7)
  1. IBRANCE [Suspect]
     Active Substance: PALBOCICLIB
     Dosage: 100 MG, [DAILY FOR THREE WEEKS]
     Route: 048
     Dates: start: 2018, end: 20200202
  2. IBRANCE [Suspect]
     Active Substance: PALBOCICLIB
     Dosage: 75MG ONE WEEK ON AND ONE WEEK OFF
  3. IBRANCE [Suspect]
     Active Substance: PALBOCICLIB
     Dosage: 125 MG, UNK
     Dates: end: 201807
  4. IBRANCE [Suspect]
     Active Substance: PALBOCICLIB
     Dosage: 100 MG, UNK
     Dates: start: 2018, end: 202001
  5. IBRANCE [Suspect]
     Active Substance: PALBOCICLIB
     Indication: BREAST CANCER FEMALE
     Dosage: 125 MG, CYCLIC (FOR THREE WEEKS ON ONE WEEK OFF)
     Route: 048
     Dates: start: 201806, end: 2018
  6. IBRANCE [Suspect]
     Active Substance: PALBOCICLIB
     Dosage: 125 MG, UNK
     Dates: start: 201808
  7. IBRANCE [Suspect]
     Active Substance: PALBOCICLIB
     Dosage: 75 MG, CYCLIC [75MG BY MOUTH DAILY FOR 21 DAYS]
     Route: 048
     Dates: start: 20200202, end: 20200213

REACTIONS (16)
  - Glossodynia [Not Recovered/Not Resolved]
  - Dyspepsia [Recovering/Resolving]
  - Toothache [Recovered/Resolved]
  - White blood cell count decreased [Recovering/Resolving]
  - Foreign body in throat [Unknown]
  - Throat irritation [Unknown]
  - Oropharyngeal pain [Unknown]
  - Nausea [Unknown]
  - Pharyngeal swelling [Recovered/Resolved]
  - Glossitis [Recovered/Resolved]
  - Speech disorder [Unknown]
  - Eating disorder [Not Recovered/Not Resolved]
  - Loose tooth [Recovered/Resolved]
  - Tongue exfoliation [Recovered/Resolved]
  - Dysphagia [Unknown]
  - Throat tightness [Unknown]

NARRATIVE: CASE EVENT DATE: 2018
